FAERS Safety Report 5171635-6 (Version None)
Quarter: 2006Q4

REPORT INFORMATION
  Report Type: 
  Country: None (occurrence: None)
  Receive Date: 20061205
  Receipt Date: 20061130
  Transmission Date: 20070319
  Serious: Yes (Hospitalization)
  Sender: FDA-Public Use
  Company Number: US-2006-014961

PATIENT
  Age: 25 Year
  Sex: Male

DRUGS (2)
  1. BETASERON [Suspect]
     Indication: MULTIPLE SCLEROSIS
     Dosage: 8 MIU, EVERY 2D, SUBCUTANEOUS
     Route: 058
     Dates: start: 20060213
  2. EFFEXOR [Concomitant]

REACTIONS (10)
  - ADJUSTMENT DISORDER WITH ANXIETY [None]
  - AGGRESSION [None]
  - ALCOHOL USE [None]
  - ANXIETY [None]
  - HEADACHE [None]
  - LIMB INJURY [None]
  - MEMORY IMPAIRMENT [None]
  - SKIN LACERATION [None]
  - SUICIDAL IDEATION [None]
  - TREMOR [None]
